FAERS Safety Report 9643219 (Version 2)
Quarter: 2014Q1

REPORT INFORMATION
  Report Type: Report from Study
  Country: US (occurrence: US)
  Receive Date: 20131024
  Receipt Date: 20140106
  Transmission Date: 20141002
  Serious: Yes (Other)
  Sender: FDA-Public Use
  Company Number: US-ABBVIE-13P-163-1159275-00

PATIENT
  Age: 59 Year
  Sex: Female
  Weight: 77.18 kg

DRUGS (26)
  1. HUMIRA [Suspect]
     Indication: IRITIS
  2. HUMIRA [Suspect]
     Indication: ANKYLOSING SPONDYLITIS
     Route: 058
     Dates: start: 20130723
  3. OMEPRAZOLE [Concomitant]
     Indication: GASTRIC DISORDER
     Route: 048
     Dates: start: 20130320
  4. OMEPRAZOLE [Concomitant]
     Indication: PROPHYLAXIS
  5. LEVOTHYROXINE [Concomitant]
     Indication: HYPOTHYROIDISM
     Route: 048
     Dates: start: 20121129, end: 20131202
  6. DORZOLAMIDE [Concomitant]
     Indication: GLAUCOMA
  7. ALPHAGAN [Concomitant]
     Indication: GLAUCOMA
  8. LATANOPROST [Concomitant]
     Indication: GLAUCOMA
     Dosage: 1 DROP EACH EYE QHS
     Route: 047
  9. PRED FORTE [Concomitant]
     Indication: IRITIS
     Dosage: 1-2 DROPS WEEKLY PRN
  10. SULFASALAZINE [Concomitant]
     Indication: PRODUCT USED FOR UNKNOWN INDICATION
  11. PIROXICAM [Concomitant]
     Indication: ANTIINFLAMMATORY THERAPY
     Route: 048
     Dates: start: 20131004
  12. ESTRADIOL [Concomitant]
     Indication: HORMONE REPLACEMENT THERAPY
     Route: 048
     Dates: start: 20130128
  13. TEMAZEPAM [Concomitant]
     Indication: RESTLESS LEGS SYNDROME
     Dosage: 1 QHS PRN
     Route: 048
     Dates: start: 20130610, end: 20131022
  14. AMBIEN [Concomitant]
     Indication: PRODUCT USED FOR UNKNOWN INDICATION
     Dosage: 0.5-1 TABLET QHS PRN
     Route: 048
     Dates: start: 20130809, end: 20131022
  15. TRAMADOL [Concomitant]
     Indication: PAIN
     Dosage: Q6H PRN
     Route: 048
     Dates: start: 20130610, end: 20131021
  16. METHOCARBINOL [Concomitant]
     Indication: MUSCLE SPASMS
     Dosage: 1-2 TAB Q6H PRN
     Route: 048
     Dates: start: 20130128
  17. HYDROCODONE/ACETAMINOPHEN [Concomitant]
     Indication: PAIN
     Dosage: 5/325MG 1 TAB Q6H PRN
     Route: 048
     Dates: start: 20130128
  18. BACTROBAN [Concomitant]
     Indication: PRODUCT USED FOR UNKNOWN INDICATION
     Dosage: 1 DOLLUP INSIDE R NOSTIL 3-4 TIME/DAY
     Dates: start: 20121129
  19. BRIMONIDE TARTRATE [Concomitant]
     Indication: PRODUCT USED FOR UNKNOWN INDICATION
     Dosage: 1 DROP EACH EYE QD
     Route: 047
  20. GABAPENTIN [Concomitant]
     Indication: PRODUCT USED FOR UNKNOWN INDICATION
     Route: 048
     Dates: start: 20131021
  21. FEXOFENADINE [Concomitant]
     Indication: PRODUCT USED FOR UNKNOWN INDICATION
     Route: 048
     Dates: start: 20110513
  22. VOLTAREN [Concomitant]
     Indication: PRODUCT USED FOR UNKNOWN INDICATION
     Route: 061
  23. BACLOFEN [Concomitant]
     Indication: PRODUCT USED FOR UNKNOWN INDICATION
     Dosage: 1 TABLET PRN
     Route: 048
  24. MELOXICAM [Concomitant]
     Indication: PRODUCT USED FOR UNKNOWN INDICATION
     Route: 048
  25. BRINZOLAMIDE [Concomitant]
     Indication: PRODUCT USED FOR UNKNOWN INDICATION
     Route: 047
  26. ATORVASTATIN [Concomitant]
     Indication: PRODUCT USED FOR UNKNOWN INDICATION
     Route: 048
     Dates: start: 20131007

REACTIONS (21)
  - Diabetes mellitus [Unknown]
  - Feeling cold [Not Recovered/Not Resolved]
  - Headache [Not Recovered/Not Resolved]
  - Sneezing [Not Recovered/Not Resolved]
  - Iritis [Not Recovered/Not Resolved]
  - Dry eye [Unknown]
  - Back pain [Recovering/Resolving]
  - Drug ineffective [Unknown]
  - Iritis [Unknown]
  - Dry mouth [Not Recovered/Not Resolved]
  - Dehydration [Not Recovered/Not Resolved]
  - Arthralgia [Unknown]
  - Glaucoma [Unknown]
  - Visual acuity reduced [Unknown]
  - Arthralgia [Unknown]
  - Spondylolisthesis [Unknown]
  - Body mass index increased [Unknown]
  - Retinal tear [Unknown]
  - Eye operation [Unknown]
  - Bursitis [Unknown]
  - Drug ineffective [Unknown]
